FAERS Safety Report 7019579-9 (Version None)
Quarter: 2010Q3

REPORT INFORMATION
  Report Type: 
  Country: None (occurrence: None)
  Receive Date: 20100928
  Receipt Date: 20100928
  Transmission Date: 20110219
  Serious: Yes (Other)
  Sender: FDA-Public Use
  Company Number: None

PATIENT
  Age: 48 Year
  Sex: Male

DRUGS (5)
  1. ROCURONIUM BROMIDE [Suspect]
     Indication: SURGERY
     Dosage: 50MG INTUBATION IN OR IV
     Route: 042
     Dates: start: 20100920, end: 20100920
  2. ROCEPHIN [Concomitant]
  3. FENTANYL [Concomitant]
  4. SEVOFLURANE [Concomitant]
  5. NEO-SYNEPHRINOL [Concomitant]

REACTIONS (2)
  - COUGH [None]
  - DRUG INEFFECTIVE [None]
